FAERS Safety Report 11876794 (Version 3)
Quarter: 2016Q1

REPORT INFORMATION
  Report Type: Spontaneous
  Country: US (occurrence: US)
  Receive Date: 20151229
  Receipt Date: 20160208
  Transmission Date: 20160526
  Serious: Yes (Death)
  Sender: FDA-Public Use
  Company Number: US-FRESENIUS MEDICAL CARE NORTH AMERICA-1045982

PATIENT
  Sex: Male

DRUGS (1)
  1. SODIUM CHLORIDE. [Suspect]
     Active Substance: SODIUM CHLORIDE
     Indication: END STAGE RENAL DISEASE

REACTIONS (1)
  - Death [Fatal]

NARRATIVE: CASE EVENT DATE: 20151221
